FAERS Safety Report 9529754 (Version 2)
Quarter: 2013Q3

REPORT INFORMATION
  Report Type: Report from Study
  Country: US (occurrence: US)
  Receive Date: 20130917
  Receipt Date: 20130925
  Transmission Date: 20140515
  Serious: Yes (Death)
  Sender: FDA-Public Use
  Company Number: US-ROCHE-1276794

PATIENT
  Age: 74 Year
  Sex: Female

DRUGS (5)
  1. RITUXAN [Suspect]
     Indication: MYOSITIS
     Dosage: MOST RECENT RITUXIMAB WAS GIVEN ON 08MAR2013
     Route: 042
     Dates: start: 2010, end: 20130308
  2. AZATHIOPRINE [Suspect]
     Indication: MYOSITIS
     Route: 048
     Dates: start: 2009
  3. METHOTREXATE [Suspect]
     Indication: MYOSITIS
     Route: 058
     Dates: start: 2009
  4. LOSARTAN [Concomitant]
     Indication: HYPERTENSION
  5. PREDNISONE [Concomitant]
     Indication: MYOSITIS
     Route: 048

REACTIONS (2)
  - Pneumocystis jirovecii pneumonia [Fatal]
  - Sepsis [Fatal]
